FAERS Safety Report 6376506-5 (Version None)
Quarter: 2009Q3

REPORT INFORMATION
  Report Type: 
  Country: None (occurrence: None)
  Receive Date: 20090925
  Receipt Date: 20090911
  Transmission Date: 20100115
  Serious: Yes (Other)
  Sender: FDA-Public Use
  Company Number: GB-PFIZER INC-2009259734

PATIENT
  Age: 44 Year

DRUGS (1)
  1. CHAMPIX [Suspect]
     Indication: SMOKING CESSATION THERAPY
     Dosage: 0.5 MG, 1X/DAY
     Dates: start: 20090520

REACTIONS (8)
  - AFFECT LABILITY [None]
  - AGGRESSION [None]
  - ANXIETY [None]
  - CRYING [None]
  - DEPRESSED MOOD [None]
  - HEADACHE [None]
  - PANIC REACTION [None]
  - SOCIAL AVOIDANT BEHAVIOUR [None]
